FAERS Safety Report 21379752 (Version 1)
Quarter: 2022Q3

REPORT INFORMATION
  Report Type: Spontaneous
  Country: US (occurrence: None)
  Receive Date: 20220923
  Receipt Date: 20220923
  Transmission Date: 20221027
  Serious: No
  Sender: FDA-Public Use
  Company Number: None

PATIENT
  Sex: Male

DRUGS (1)
  1. SIMPONI ARIA [Suspect]
     Active Substance: GOLIMUMAB
     Indication: Psoriatic arthropathy
     Dosage: OTHER QUANTITY : 2MG/KG;?OTHER FREQUENCY : EVERY 8 WEEKS ;?
     Route: 042
     Dates: start: 20220422

REACTIONS (1)
  - Therapy non-responder [None]
